FAERS Safety Report 13096550 (Version 1)
Quarter: 2017Q1

REPORT INFORMATION
  Report Type: Spontaneous
  Country: US (occurrence: US)
  Receive Date: 20170106
  Receipt Date: 20170106
  Transmission Date: 20170428
  Serious: Yes (Death, Hospitalization)
  Sender: FDA-Public Use
  Company Number: None

PATIENT
  Age: 83 Year
  Sex: Male

DRUGS (1)
  1. REVLIMID [Suspect]
     Active Substance: LENALIDOMIDE
     Indication: PLASMA CELL MYELOMA
     Dosage: DOSE - 10MG?FREQUENCY - 1 PO QD X 7D
     Route: 048
     Dates: start: 201309, end: 201310

REACTIONS (2)
  - Condition aggravated [None]
  - Failure to thrive [None]

NARRATIVE: CASE EVENT DATE: 20131103
